FAERS Safety Report 5886726-1 (Version None)
Quarter: 2008Q3

REPORT INFORMATION
  Report Type: 
  Country: None (occurrence: None)
  Receive Date: 20080917
  Receipt Date: 20080911
  Transmission Date: 20090109
  Serious: Yes (Congenital Anomaly, Other)
  Sender: FDA-Public Use
  Company Number: PHHY2008GB21466

PATIENT
  Age: 8 Year

DRUGS (1)
  1. TEGRETOL [Suspect]
     Route: 064

REACTIONS (3)
  - CONVULSION [None]
  - DRUG EXPOSURE DURING PREGNANCY [None]
  - INFANTILE SPASMS [None]
